FAERS Safety Report 6395503-7 (Version None)
Quarter: 2009Q3

REPORT INFORMATION
  Report Type: 
  Country: None (occurrence: None)
  Receive Date: 20090923
  Receipt Date: 20090909
  Transmission Date: 20100115
  Serious: Yes (Hospitalization)
  Sender: FDA-Public Use
  Company Number: US-144848

PATIENT
  Age: 54 Year
  Sex: Male

DRUGS (5)
  1. HEPAGAM B [Suspect]
     Indication: ANTIVIRAL PROPHYLAXIS
     Dosage: (20000 IU 1X10 WEEKS INTRAVENOUS))
     Route: 042
     Dates: start: 20090711, end: 20090711
  2. AMLODIPINE [Concomitant]
  3. PROGRAF [Concomitant]
  4. ENTECAVIR [Concomitant]
  5. SEPTRA [Concomitant]

REACTIONS (9)
  - ABDOMINAL PAIN UPPER [None]
  - BILE DUCT STENOSIS [None]
  - BLOOD CREATININE INCREASED [None]
  - BLOOD GLUCOSE INCREASED [None]
  - COLD SWEAT [None]
  - HAEMATOCRIT DECREASED [None]
  - HEPATIC VEIN STENOSIS [None]
  - LIPASE INCREASED [None]
  - NAUSEA [None]
